FAERS Safety Report 8307746-3 (Version None)
Quarter: 2012Q2

REPORT INFORMATION
  Report Type: 
  Country: None (occurrence: None)
  Receive Date: 20120424
  Receipt Date: 20120416
  Transmission Date: 20120825
  Serious: Yes (Death, Hospitalization, Other)
  Sender: FDA-Public Use
  Company Number: US-PFIZER INC-2012067201

PATIENT
  Sex: Female

DRUGS (5)
  1. FUROSEMIDE [Concomitant]
     Indication: PULMONARY ARTERIAL HYPERTENSION
     Dosage: 80 MG, 1X/DAY
  2. REVATIO [Suspect]
     Indication: PULMONARY ARTERIAL HYPERTENSION
     Dosage: 40 MG, 3X/DAY
     Route: 048
     Dates: start: 20071218
  3. ATENOLOL [Concomitant]
     Indication: HYPERTENSION
     Dosage: 12 MG, 1X/DAY
  4. WARFARIN [Concomitant]
     Indication: ATRIAL FIBRILLATION
     Dosage: UNK, YEARS
  5. FUROSEMIDE [Concomitant]
     Indication: HYPERTENSION

REACTIONS (1)
  - CARDIAC FAILURE CONGESTIVE [None]
